FAERS Safety Report 8781450 (Version 2)
Quarter: 2013Q1

REPORT INFORMATION
  Report Type: Report from Study
  Country: JP (occurrence: JP)
  Receive Date: 20120913
  Receipt Date: 20130329
  Transmission Date: 20140127
  Serious: Yes (Hospitalization)
  Sender: FDA-Public Use
  Company Number: JP-009507513-1209JPN003152

PATIENT
  Age: 51 Year
  Sex: Female
  Weight: 53 kg

DRUGS (9)
  1. PEGINTRON [Suspect]
     Indication: HEPATITIS C
     Dosage: 1.5 MICROGRAM PER KILOGRAM, QW
     Route: 058
     Dates: start: 20120712, end: 20120815
  2. PEGINTRON [Suspect]
     Dosage: 1.0 MICROGRAM PER KILOGRAM, QW
     Route: 058
     Dates: start: 20120816
  3. REBETOL [Suspect]
     Indication: HEPATITIS C
     Dosage: 600 MG, QD
     Route: 048
     Dates: start: 20120712, end: 20120801
  4. REBETOL [Suspect]
     Dosage: 400 MG, QD
     Route: 048
     Dates: start: 20120802, end: 20120815
  5. REBETOL [Suspect]
     Dosage: 200 MG, QD
     Route: 048
     Dates: start: 20120816
  6. TELAVIC [Suspect]
     Indication: HEPATITIS C
     Dosage: DOSE: 1500 MG, CUMULATIVE DOSE: 4500 MG, START INTERVAL: 3 DAY
     Route: 048
     Dates: start: 20120712, end: 20120823
  7. URSO [Concomitant]
     Indication: HEPATITIS C
     Dosage: FORMULATION: POR
     Route: 048
  8. MYSER (DIFLUPREDNATE) [Concomitant]
     Indication: PROPHYLAXIS
     Dosage: 0.05%, PRN, DAILY DOSE UNKNOWN
     Route: 061
     Dates: start: 20120718
  9. ALLELOCK [Concomitant]
     Indication: PROPHYLAXIS
     Dosage: 10 MG, QD
     Route: 048
     Dates: start: 20120723

REACTIONS (2)
  - Anaemia [Recovering/Resolving]
  - Rash [Recovering/Resolving]
